FAERS Safety Report 4350649-X (Version None)
Quarter: 2004Q2

REPORT INFORMATION
  Report Type: 
  Country: None (occurrence: None)
  Receive Date: 20040427
  Receipt Date: 20040413
  Transmission Date: 20050107
  Serious: Yes (Hospitalization)
  Sender: FDA-Public Use
  Company Number: A02200401306

PATIENT
  Age: 67 Year
  Sex: Male

DRUGS (6)
  1. FASTURTEC (RASBURICASE) - POWDER - 1.5 MG/ML [Suspect]
     Dosage: 15 MG, INTRAVENOUS NOS
     Route: 042
     Dates: start: 20040202
  2. FLUDARA [Suspect]
     Indication: CHRONIC LYMPHOCYTIC LEUKAEMIA
     Dosage: 25 MG QD, INTRAVENOUS NOS
     Route: 042
     Dates: start: 20040202, end: 20040206
  3. BETASERC (BETAHISTINE HYDROCHLORIDE) [Concomitant]
  4. ALLOPURINOL [Concomitant]
  5. VASTAREL (TRIMETAZIDINE HYDROCHLORIDE) [Concomitant]
  6. PRIMPERAN TAB [Concomitant]

REACTIONS (1)
  - COOMBS POSITIVE HAEMOLYTIC ANAEMIA [None]
